FAERS Safety Report 8489932-5 (Version None)
Quarter: 2012Q3

REPORT INFORMATION
  Report Type: 
  Country: None (occurrence: None)
  Receive Date: 20120705
  Receipt Date: 20120702
  Transmission Date: 20120928
  Serious: No
  Sender: FDA-Public Use
  Company Number: US-PFIZER INC-2012158614

PATIENT
  Sex: Female
  Weight: 62.585 kg

DRUGS (6)
  1. EFFEXOR [Concomitant]
     Indication: DEPRESSION
     Dosage: 150 MG, 2X/DAY
     Route: 048
     Dates: start: 20110101
  2. GEODON [Suspect]
     Indication: TREMOR
     Dosage: 60 MG, 2X/DAY
     Route: 048
     Dates: start: 20110101, end: 20120501
  3. GEODON [Suspect]
     Indication: DEPRESSION
  4. NOVOLOG [Concomitant]
     Indication: DIABETES MELLITUS
     Dosage: UNK, AS NEEDED
  5. GEODON [Suspect]
     Indication: NERVOUSNESS
  6. ALTACE [Concomitant]
     Indication: HYPERTENSION
     Dosage: 10 MG, DAILY
     Route: 048

REACTIONS (1)
  - DRUG INEFFECTIVE [None]
